FAERS Safety Report 22210692 (Version 1)
Quarter: 2023Q2

REPORT INFORMATION
  Report Type: Spontaneous
  Country: JP (occurrence: JP)
  Receive Date: 20230414
  Receipt Date: 20230414
  Transmission Date: 20230721
  Serious: Yes (Other)
  Sender: FDA-Public Use
  Company Number: JP-SUN PHARMACEUTICAL INDUSTRIES LTD-2023R1-384099

PATIENT
  Age: 26 Year
  Sex: Male
  Weight: 85 kg

DRUGS (1)
  1. DEXAMETHASONE [Suspect]
     Active Substance: DEXAMETHASONE
     Indication: Adrenogenital syndrome
     Dosage: 0.25 MILLIGRAM, DAILY
     Route: 065

REACTIONS (1)
  - Weight increased [Unknown]
